FAERS Safety Report 14110891 (Version 19)
Quarter: 2018Q2

REPORT INFORMATION
  Report Type: Spontaneous
  Country: US (occurrence: US)
  Receive Date: 20171020
  Receipt Date: 20180501
  Transmission Date: 20180711
  Serious: Yes (Hospitalization, Other)
  Sender: FDA-Public Use
  Company Number: US-PFIZER INC-2017452685

PATIENT
  Age: 79 Year
  Sex: Male
  Weight: 81 kg

DRUGS (12)
  1. LYRICA [Suspect]
     Active Substance: PREGABALIN
     Dosage: 100 MG, UNK
  2. LYRICA [Suspect]
     Active Substance: PREGABALIN
     Indication: PAIN
     Dosage: 100 MG, TWICE A DAY (1 AT 6PM AND 1 IN THE MORNING WHEN HE WAKES UP)
     Dates: start: 2004
  3. LYRICA [Suspect]
     Active Substance: PREGABALIN
     Dosage: 100 MG, 2X/DAY (ONCE AT 7 PM AND ONE WHEN HE WAKES UP AT 2:00 AM OR 3:00 AM)
  4. LYRICA [Suspect]
     Active Substance: PREGABALIN
     Dosage: UNK
  5. LYRICA [Suspect]
     Active Substance: PREGABALIN
     Dosage: 100 MG, UNK
  6. LYRICA [Suspect]
     Active Substance: PREGABALIN
     Dosage: 100 MG, UNK
  7. LYRICA [Suspect]
     Active Substance: PREGABALIN
     Dosage: UNK
  8. PREGABALIN. [Suspect]
     Active Substance: PREGABALIN
     Indication: NEUROPATHY PERIPHERAL
     Dosage: UNK
  9. LYRICA [Suspect]
     Active Substance: PREGABALIN
     Indication: NEUROPATHY PERIPHERAL
     Dosage: 100 MG AND 25 MG, UNKNOWN FREQUENCY
     Dates: start: 2004
  10. LYRICA [Suspect]
     Active Substance: PREGABALIN
     Dosage: 100 MG, TWICE A DAY
     Dates: start: 2014
  11. LYRICA [Suspect]
     Active Substance: PREGABALIN
     Dosage: 25 MG, UNK
     Route: 048
  12. LYRICA [Suspect]
     Active Substance: PREGABALIN
     Dosage: 100 MG, UNK

REACTIONS (16)
  - Incorrect dosage administered [Unknown]
  - Burning sensation [Unknown]
  - Hypoaesthesia [Unknown]
  - Product packaging issue [Not Recovered/Not Resolved]
  - Drug dispensing error [Unknown]
  - Insomnia [Unknown]
  - Arthralgia [Not Recovered/Not Resolved]
  - Malaise [Not Recovered/Not Resolved]
  - Pain in extremity [Not Recovered/Not Resolved]
  - Drug ineffective [Not Recovered/Not Resolved]
  - Loss of personal independence in daily activities [Unknown]
  - Weight decreased [Not Recovered/Not Resolved]
  - Product size issue [Unknown]
  - Product colour issue [Not Recovered/Not Resolved]
  - Product physical issue [Not Recovered/Not Resolved]
  - Feeding disorder [Unknown]
